FAERS Safety Report 24739537 (Version 3)
Quarter: 2025Q1

REPORT INFORMATION
  Report Type: Spontaneous
  Country: GB (occurrence: GB)
  Receive Date: 20241216
  Receipt Date: 20250312
  Transmission Date: 20250409
  Serious: Yes (Hospitalization, Other)
  Sender: MYLAN
  Company Number: GB-MYLANLABS-2024M1066585

PATIENT
  Age: 69 Year
  Sex: Female

DRUGS (2)
  1. CLOZARIL [Suspect]
     Active Substance: CLOZAPINE
     Indication: Schizophrenia
     Dosage: 20 MILLIGRAM, QD (ONCE DAILY)
     Dates: start: 20010701, end: 20241208
  2. CLOZARIL [Suspect]
     Active Substance: CLOZAPINE

REACTIONS (7)
  - Hospitalisation [Unknown]
  - Thrombocytopenia [Recovered/Resolved]
  - COVID-19 [Unknown]
  - White blood cell count decreased [Recovered/Resolved]
  - Eosinophil count decreased [Not Recovered/Not Resolved]
  - Infection [Unknown]
  - Therapy cessation [Unknown]

NARRATIVE: CASE EVENT DATE: 20130101
